FAERS Safety Report 6998022-X (Version None)
Quarter: 2010Q3

REPORT INFORMATION
  Report Type: 
  Country: None (occurrence: None)
  Receive Date: 20100920
  Receipt Date: 20090720
  Transmission Date: 20110219
  Serious: Yes (Other)
  Sender: FDA-Public Use
  Company Number: US-ASTRAZENECA-2007UW04310

PATIENT
  Age: 17780 Day
  Sex: Male

DRUGS (5)
  1. SEROQUEL [Suspect]
     Route: 048
     Dates: start: 20000503
  2. WELLBUTRIN [Concomitant]
     Dates: start: 20000503
  3. TRAZODONE HCL [Concomitant]
     Dates: start: 20000503
  4. EFFEXOR [Concomitant]
     Dates: start: 20000503
  5. DEPAKOTE [Concomitant]
     Dates: start: 20000503

REACTIONS (3)
  - DIABETIC KETOACIDOSIS [None]
  - PANCREATITIS [None]
  - TYPE 2 DIABETES MELLITUS [None]
